FAERS Safety Report 4837881-3 (Version None)
Quarter: 2005Q4

REPORT INFORMATION
  Report Type: 
  Country: None (occurrence: None)
  Receive Date: 20051123
  Receipt Date: 20051123
  Transmission Date: 20060501
  Serious: Yes (Other)
  Sender: FDA-Public Use
  Company Number: None

PATIENT
  Sex: Female
  Weight: 14.9687 kg

DRUGS (1)
  1. ELIDEL [Suspect]
     Indication: ECZEMA
     Dosage: AS NEEDED ON FACE AND CHEST, TOPICAL
     Route: 061
     Dates: start: 20030101, end: 20050301

REACTIONS (2)
  - PNEUMONIA [None]
  - SINUSITIS [None]
